FAERS Safety Report 9415171 (Version 1)
Quarter: 2013Q3

REPORT INFORMATION
  Report Type: Spontaneous
  Country: FR (occurrence: FR)
  Receive Date: 20130723
  Receipt Date: 20130723
  Transmission Date: 20140515
  Serious: Yes (Hospitalization)
  Sender: FDA-Public Use
  Company Number: FR-ASTRAZENECA-2013SE52711

PATIENT
  Age: 3917 Week
  Sex: Female

DRUGS (12)
  1. BRILIQUE [Suspect]
     Route: 048
     Dates: start: 20130326, end: 20130425
  2. TAHOR [Suspect]
     Route: 048
     Dates: start: 20130326, end: 20130423
  3. TEMESTA [Concomitant]
     Route: 048
  4. COVERSYL [Concomitant]
     Route: 048
     Dates: start: 20130326, end: 20130425
  5. COVERSYL [Concomitant]
     Route: 048
     Dates: start: 20130514
  6. KARDEGIC [Concomitant]
     Route: 048
     Dates: start: 20130326
  7. CARDENSIEL [Concomitant]
     Route: 048
     Dates: start: 20130326
  8. SEROPLEX [Concomitant]
     Route: 048
  9. PLAVIX [Concomitant]
     Route: 048
  10. INIPOMP [Concomitant]
     Route: 048
  11. DAFALGAN [Concomitant]
     Route: 048
  12. LASILIX [Concomitant]
     Route: 048
     Dates: start: 20130402, end: 20130416

REACTIONS (2)
  - Rhabdomyolysis [Recovered/Resolved]
  - Renal failure acute [Recovering/Resolving]
